FAERS Safety Report 5006926-2 (Version None)
Quarter: 2006Q2

REPORT INFORMATION
  Report Type: 
  Country: None (occurrence: None)
  Receive Date: 20060517
  Receipt Date: 20060501
  Transmission Date: 20061013
  Serious: Yes (Other)
  Sender: FDA-Public Use
  Company Number: 2006BL002571

PATIENT

DRUGS (2)
  1. VITRASERT STERILE INTRAVITREA                  (GANCICLOVIR) [Suspect]
     Indication: CYTOMEGALOVIRUS CHORIORETINITIS
     Dosage: INTRAOCULAR
     Route: 031
  2. ANTI-RETROVIRAL THERAPY [Concomitant]

REACTIONS (4)
  - DEVICE BREAKAGE [None]
  - MACULAR OEDEMA [None]
  - SUTURE RELATED COMPLICATION [None]
  - VISUAL ACUITY REDUCED [None]
